FAERS Safety Report 21285280 (Version 2)
Quarter: 2022Q4

REPORT INFORMATION
  Report Type: Spontaneous
  Country: FR (occurrence: FR)
  Receive Date: 20220902
  Receipt Date: 20221007
  Transmission Date: 20230113
  Serious: Yes (Other)
  Sender: FDA-Public Use
  Company Number: FR-SUN PHARMACEUTICAL INDUSTRIES LTD-2022RR-352777

PATIENT
  Age: 74 Year
  Sex: Male
  Weight: 81 kg

DRUGS (20)
  1. PERINDOPRIL [Suspect]
     Active Substance: PERINDOPRIL
     Indication: Cardiovascular disorder
     Dosage: 8 MILLIGRAM, DAILY
     Route: 048
     Dates: end: 20220227
  2. METFORMIN HYDROCHLORIDE [Suspect]
     Active Substance: METFORMIN HYDROCHLORIDE
     Indication: Insulin-requiring type 2 diabetes mellitus
     Dosage: 2000 MILLIGRAM, DAILY
     Route: 048
     Dates: end: 20220228
  3. GLICLAZIDE [Suspect]
     Active Substance: GLICLAZIDE
     Indication: Insulin-requiring type 2 diabetes mellitus
     Dosage: 60 MILLIGRAM, DAILY
     Route: 048
     Dates: end: 20220228
  4. AMIODARONE HYDROCHLORIDE [Suspect]
     Active Substance: AMIODARONE HYDROCHLORIDE
     Indication: Product used for unknown indication
     Dosage: 800 MILLIGRAM, DAILY
     Route: 048
     Dates: start: 20220227
  5. INDAPAMIDE [Suspect]
     Active Substance: INDAPAMIDE
     Indication: Cardiovascular disorder
     Dosage: 1.5 MILLIGRAM, DAILY
     Route: 048
     Dates: end: 20220227
  6. TICAGRELOR [Suspect]
     Active Substance: TICAGRELOR
     Indication: Anticoagulant therapy
     Dosage: 180 MILLIGRAM, DAILY
     Route: 048
     Dates: start: 20220225, end: 20220227
  7. PLAVIX [Suspect]
     Active Substance: CLOPIDOGREL BISULFATE
     Indication: Product used for unknown indication
     Dosage: 300 MILLIGRAM, DAILY
     Route: 048
     Dates: start: 20220227, end: 20220228
  8. HEPARIN SODIUM [Suspect]
     Active Substance: HEPARIN SODIUM
     Indication: Thrombosis prophylaxis
     Dosage: 24000 INTERNATIONAL UNIT, DAILY
     Route: 040
     Dates: start: 20220225, end: 20220227
  9. IOMERON [Suspect]
     Active Substance: IOMEPROL
     Indication: Scan with contrast
     Dosage: 182 MILLILITER, TOTAL 1
     Route: 040
     Dates: start: 20220225, end: 20220225
  10. XARELTO [Suspect]
     Active Substance: RIVAROXABAN
     Indication: Product used for unknown indication
     Dosage: 20 MILLIGRAM, DAILY
     Route: 048
     Dates: start: 20220227
  11. ATORVASTATIN [Suspect]
     Active Substance: ATORVASTATIN
     Indication: Dyslipidaemia
     Dosage: 80 MILLIGRAM, DAILY, FROM ARROW
     Route: 048
     Dates: end: 20220227
  12. VILDAGLIPTIN [Concomitant]
     Active Substance: VILDAGLIPTIN
     Indication: Product used for unknown indication
     Dosage: UNK
     Route: 065
  13. DOLIPRANE [Concomitant]
     Active Substance: ACETAMINOPHEN
     Indication: Product used for unknown indication
     Dosage: UNK
     Route: 065
  14. INSULIN GLARGINE [Concomitant]
     Active Substance: INSULIN GLARGINE
     Indication: Product used for unknown indication
     Dosage: UNK
     Route: 065
  15. BECLOMETASONE TEVA 250 microgrammes/dose, solution pour inhalation en [Concomitant]
     Indication: Product used for unknown indication
     Dosage: UNK
     Route: 065
  16. HUMALOG [Concomitant]
     Active Substance: INSULIN LISPRO
     Indication: Product used for unknown indication
     Dosage: UNK
     Route: 065
  17. FOLIC ACID [Concomitant]
     Active Substance: FOLIC ACID
     Indication: Product used for unknown indication
     Dosage: UNK
     Route: 065
  18. ALBUTEROL [Concomitant]
     Active Substance: ALBUTEROL
     Indication: Product used for unknown indication
     Dosage: UNK
     Route: 065
  19. KARDEGIC [Concomitant]
     Active Substance: ASPIRIN DL-LYSINE
     Indication: Product used for unknown indication
     Dosage: UNK
     Route: 065
  20. LANSOPRAZOLE VIATRIS 15 mg, comprime orodispersible [Concomitant]
     Indication: Product used for unknown indication
     Dosage: UNK
     Route: 065

REACTIONS (1)
  - Acute kidney injury [Recovered/Resolved]

NARRATIVE: CASE EVENT DATE: 20220227
